FAERS Safety Report 18565161 (Version 1)
Quarter: 2020Q4

REPORT INFORMATION
  Report Type: Spontaneous
  Country: US (occurrence: US)
  Receive Date: 20201201
  Receipt Date: 20201201
  Transmission Date: 20210114
  Serious: Yes (Other)
  Sender: FDA-Public Use
  Company Number: US-BAYER-2020-252447

PATIENT
  Age: 9 Decade
  Sex: Female

DRUGS (1)
  1. MIRALAX [Suspect]
     Active Substance: POLYETHYLENE GLYCOL 3350
     Dosage: UNK, BID
     Route: 065

REACTIONS (4)
  - Chest discomfort [Unknown]
  - Feeling of body temperature change [Unknown]
  - Disorientation [Unknown]
  - Hyperhidrosis [Unknown]
